FAERS Safety Report 5366990-8 (Version None)
Quarter: 2007Q2

REPORT INFORMATION
  Report Type: 
  Country: None (occurrence: None)
  Receive Date: 20070619
  Receipt Date: 20070607
  Transmission Date: 20071010
  Serious: Yes (Life-Threatening, Hospitalization)
  Sender: FDA-Public Use
  Company Number: GXKR2007GB04985

PATIENT
  Age: 87 Year
  Sex: Male

DRUGS (4)
  1. ASPIRIN [Suspect]
     Dosage: 75 MG, QD, ORAL
     Route: 048
     Dates: end: 20061228
  2. AMLODIPINE [Concomitant]
  3. ATENOLOL [Concomitant]
  4. ENALAPRIL               (ENALAPRIL) [Concomitant]

REACTIONS (3)
  - BLOOD POTASSIUM INCREASED [None]
  - BLOOD PRESSURE INCREASED [None]
  - DUODENAL ULCER HAEMORRHAGE [None]
